FAERS Safety Report 9006864 (Version 3)
Quarter: 2013Q2

REPORT INFORMATION
  Report Type: Spontaneous
  Country: US (occurrence: US)
  Receive Date: 20130110
  Receipt Date: 20130405
  Transmission Date: 20140414
  Serious: No
  Sender: FDA-Public Use
  Company Number: US-PFIZER INC-2013008711

PATIENT
  Age: 51 Year
  Sex: Female

DRUGS (1)
  1. CLINDAMYCIN HCL [Suspect]
     Indication: LOCALISED INFECTION
     Dosage: 300 MG, 2X/DAY
     Route: 048
     Dates: start: 20121221, end: 20130107

REACTIONS (8)
  - Rash papular [Recovered/Resolved]
  - Local swelling [Recovered/Resolved]
  - Oedema peripheral [Recovered/Resolved]
  - Joint swelling [Unknown]
  - Pruritus [Unknown]
  - Burning sensation [Unknown]
  - Rash [Recovered/Resolved]
  - Rash [Recovered/Resolved]
